FAERS Safety Report 8871236 (Version 10)
Quarter: 2015Q4

REPORT INFORMATION
  Report Type: Spontaneous
  Country: US (occurrence: None)
  Receive Date: 20121025
  Receipt Date: 20151106
  Transmission Date: 20160305
  Serious: Yes (Hospitalization, Other)
  Sender: FDA-Public Use
  Company Number: ADR-2012-01935

PATIENT
  Sex: Male

DRUGS (1)
  1. LIORESAL [Suspect]
     Active Substance: BACLOFEN
     Indication: MUSCLE SPASTICITY
     Dosage: 590 MCG/DAY;595 MCG/DAY

REACTIONS (25)
  - Sensory loss [None]
  - Urinary tract infection [None]
  - No therapeutic response [None]
  - Discomfort [None]
  - Medical device site bruise [None]
  - Insomnia [None]
  - Postoperative wound infection [None]
  - Muscle spasticity [None]
  - Implant site pain [None]
  - Pain [None]
  - General physical health deterioration [None]
  - Skin atrophy [None]
  - Medical device site discomfort [None]
  - Muscle rigidity [None]
  - Incorrect dose administered [None]
  - Performance status decreased [None]
  - Hypertonia [None]
  - Implant site infection [None]
  - Device kink [None]
  - Infusion site mass [None]
  - Medical device site erosion [None]
  - Muscle disorder [None]
  - Areflexia [None]
  - Muscle spasms [None]
  - Device related infection [None]
